FAERS Safety Report 8873406 (Version 2)
Quarter: 2013Q1

REPORT INFORMATION
  Report Type: Spontaneous
  Country: US (occurrence: US)
  Receive Date: 20121030
  Receipt Date: 20130204
  Transmission Date: 20140127
  Serious: Yes (Hospitalization)
  Sender: FDA-Public Use
  Company Number: US-ELI_LILLY_AND_COMPANY-US201210005799

PATIENT
  Sex: Female
  Weight: 67.12 kg

DRUGS (4)
  1. ADCIRCA [Suspect]
  2. REMODULIN [Concomitant]
     Indication: PULMONARY ARTERIAL HYPERTENSION
     Dosage: 10 MG, UNK
     Route: 042
     Dates: start: 20110114
  3. COUMADIN [Concomitant]
  4. DIURETICS [Concomitant]

REACTIONS (1)
  - Hypoxia [Unknown]
